FAERS Safety Report 4752709-8 (Version None)
Quarter: 2005Q3

REPORT INFORMATION
  Report Type: 
  Country: None (occurrence: None)
  Receive Date: 20050823
  Receipt Date: 20050808
  Transmission Date: 20060218
  Serious: Yes (Other)
  Sender: FDA-Public Use
  Company Number: 2005BI012085

PATIENT
  Age: 53 Year
  Sex: Female

DRUGS (3)
  1. AVONEX [Suspect]
     Indication: MULTIPLE SCLEROSIS
     Dosage: IM
     Route: 030
     Dates: start: 19950101
  2. SYNTHROID [Concomitant]
  3. M.V.I. [Concomitant]

REACTIONS (2)
  - BLADDER CANCER [None]
  - BREAST CANCER FEMALE [None]
